FAERS Safety Report 13043231 (Version 1)
Quarter: 2016Q4

REPORT INFORMATION
  Report Type: Spontaneous
  Country: KZ (occurrence: KZ)
  Receive Date: 20161219
  Receipt Date: 20161219
  Transmission Date: 20170207
  Serious: Yes (Other)
  Sender: FDA-Public Use
  Company Number: PHHY2016KZ170417

PATIENT
  Age: 2 Year
  Sex: Female

DRUGS (3)
  1. ANGAL S [Suspect]
     Active Substance: CHLORHEXIDINE\LIDOCAINE
     Indication: COUGH
     Dosage: UNK UNK, BID
     Route: 065
     Dates: start: 20161121, end: 20161121
  2. AMBROBENE [Concomitant]
     Active Substance: AMBROXOL HYDROCHLORIDE
     Indication: COUGH
     Route: 048
     Dates: start: 20161119, end: 20161121
  3. FURACILIN [Concomitant]
     Indication: COUGH
     Route: 065
     Dates: start: 20161121, end: 20161121

REACTIONS (2)
  - Tracheitis [Recovered/Resolved]
  - Off label use [Unknown]

NARRATIVE: CASE EVENT DATE: 20161121
